FAERS Safety Report 7735289-4 (Version None)
Quarter: 2011Q3

REPORT INFORMATION
  Report Type: 
  Country: None (occurrence: None)
  Receive Date: 20110907
  Receipt Date: 20110905
  Transmission Date: 20111222
  Serious: Yes (Other)
  Sender: FDA-Public Use
  Company Number: CN-ASTRAZENECA-2011SE53090

PATIENT
  Sex: Female

DRUGS (2)
  1. PROPOFOL [Suspect]
     Indication: ANAESTHESIA
     Dosage: 1.5-2.0 MG/KG
     Route: 042
  2. KETAMINE HCL [Suspect]
     Indication: ANAESTHESIA
     Route: 042

REACTIONS (1)
  - RESPIRATORY DEPRESSION [None]
